FAERS Safety Report 20392628 (Version 3)
Quarter: 2022Q1

REPORT INFORMATION
  Report Type: Spontaneous
  Country: SE (occurrence: SE)
  Receive Date: 20220128
  Receipt Date: 20220211
  Transmission Date: 20220424
  Serious: Yes (Hospitalization)
  Sender: FDA-Public Use
  Company Number: SE-ORGANON-O2201SWE001458

PATIENT
  Age: 30 Year
  Sex: Male

DRUGS (6)
  1. MIRTAZAPINE [Suspect]
     Active Substance: MIRTAZAPINE
     Dosage: 45 MILLIGRAM, QD
     Route: 048
     Dates: start: 202006
  2. QUETIAPINE [Suspect]
     Active Substance: QUETIAPINE
     Dosage: 900 MILLIGRAM, QD
     Dates: start: 202006, end: 2020
  3. QUETIAPINE [Suspect]
     Active Substance: QUETIAPINE
     Dosage: 300 MILLIGRAM, QD
     Dates: start: 2020, end: 2020
  4. QUETIAPINE [Suspect]
     Active Substance: QUETIAPINE
     Dosage: 900 MILLIGRAM,QD
     Dates: start: 202011
  5. LITHIUM [Suspect]
     Active Substance: LITHIUM
     Dosage: 210 MILLIGRAM, QD
     Dates: start: 201810
  6. LITHIUM [Suspect]
     Active Substance: LITHIUM
     Dosage: 168 MILLIGRAM, QD
     Dates: start: 202006

REACTIONS (1)
  - Treatment noncompliance [Unknown]

NARRATIVE: CASE EVENT DATE: 20200601
